FAERS Safety Report 4381680-6 (Version None)
Quarter: 2004Q2

REPORT INFORMATION
  Report Type: 
  Country: None (occurrence: None)
  Receive Date: 20040615
  Receipt Date: 20040508
  Transmission Date: 20050107
  Serious: Yes (Hospitalization, Other)
  Sender: FDA-Public Use
  Company Number: KII-2004-0011112

PATIENT
  Age: 52 Year
  Sex: Male

DRUGS (8)
  1. OXYCONTIN [Suspect]
     Indication: PAIN
     Dosage: ORAL
     Route: 048
     Dates: start: 20040101
  2. BENZODIAZEPINE DERIVATIVES () [Suspect]
     Dosage: ORAL
     Route: 048
     Dates: start: 20040101
  3. BACLOFEN [Suspect]
     Dosage: ORAL
     Route: 048
     Dates: start: 20040101
  4. DOCUSATE SODIUM (DOCUSATE SODIUM) [Suspect]
     Dosage: ORAL
     Dates: start: 20040101
  5. MARIJUANA (CANNABIS) [Suspect]
  6. TRICYCLIC ANTIDEPRESSANTS() [Suspect]
  7. ULTRAM [Suspect]
  8. ANTIEPILEPTICS () [Suspect]

REACTIONS (29)
  - ABNORMAL BEHAVIOUR [None]
  - AGGRESSION [None]
  - AGITATION [None]
  - ANGER [None]
  - ASPARTATE AMINOTRANSFERASE INCREASED [None]
  - BACK PAIN [None]
  - BLOOD ALKALINE PHOSPHATASE INCREASED [None]
  - BLOOD GLUCOSE INCREASED [None]
  - BLOOD PRESSURE SYSTOLIC INCREASED [None]
  - BLOOD UREA INCREASED [None]
  - BODY TEMPERATURE DECREASED [None]
  - CONVULSION [None]
  - DELIRIUM [None]
  - DISORIENTATION [None]
  - DRUG ABUSER [None]
  - DRUG WITHDRAWAL SYNDROME [None]
  - GRUNTING [None]
  - HYPERHIDROSIS [None]
  - LOSS OF CONSCIOUSNESS [None]
  - MOANING [None]
  - OVERDOSE [None]
  - PATIENT RESTRAINT [None]
  - PUPILLARY REFLEX IMPAIRED [None]
  - SOMNOLENCE [None]
  - STUPOR [None]
  - TREMOR [None]
  - URINARY INCONTINENCE [None]
  - WHITE BLOOD CELL COUNT INCREASED [None]
  - WHITE BLOOD CELLS URINE POSITIVE [None]
